FAERS Safety Report 5403048-3 (Version None)
Quarter: 2007Q3

REPORT INFORMATION
  Report Type: 
  Country: None (occurrence: None)
  Receive Date: 20070713
  Receipt Date: 20070418
  Transmission Date: 20080115
  Serious: Yes (Other)
  Sender: FDA-Public Use
  Company Number: 493519

PATIENT
  Age: 59 Year
  Sex: Female
  Weight: 61.7 kg

DRUGS (6)
  1. BONIVA [Suspect]
     Indication: OSTEOPOROSIS
     Dosage: 150 MG  1 PER MONTH  ORAL
     Route: 048
     Dates: start: 20060909, end: 20060909
  2. NEXIUM [Concomitant]
  3. ALLEGRA [Concomitant]
  4. ZANTAC [Concomitant]
  5. CARAFATE [Concomitant]
  6. DONNATAL (ATROPINE SULFATE/HYOSCYAMINE SULFATE/PHENOBARBITAL/SCOPOLAMI [Concomitant]

REACTIONS (10)
  - ABDOMINAL PAIN [None]
  - ARTHRALGIA [None]
  - EYE IRRITATION [None]
  - GASTRITIS [None]
  - MUSCULAR WEAKNESS [None]
  - MYALGIA [None]
  - OEDEMA PERIPHERAL [None]
  - PHARYNGOLARYNGEAL PAIN [None]
  - RASH [None]
  - URTICARIA [None]
